FAERS Safety Report 25790324 (Version 1)
Quarter: 2025Q3

REPORT INFORMATION
  Report Type: Spontaneous
  Country: EU (occurrence: EU)
  Receive Date: 20250911
  Receipt Date: 20250911
  Transmission Date: 20251020
  Serious: Yes (Hospitalization)
  Sender: RANBAXY
  Company Number: EU-AFSSAPS-BX2025000816

PATIENT
  Age: 75 Year
  Sex: Female

DRUGS (3)
  1. GABAPENTIN [Suspect]
     Active Substance: GABAPENTIN
     Indication: Wrong patient
     Route: 048
     Dates: start: 20250420, end: 20250420
  2. LAMICTAL [Suspect]
     Active Substance: LAMOTRIGINE
     Indication: Wrong patient
     Route: 048
     Dates: start: 20250420, end: 20250420
  3. CLOZAPINE [Suspect]
     Active Substance: CLOZAPINE
     Indication: Wrong patient
     Route: 048
     Dates: start: 20250420, end: 20250420

REACTIONS (3)
  - Somnolence [Recovered/Resolved]
  - Hypotension [Recovered/Resolved]
  - Wrong patient [Recovered/Resolved]

NARRATIVE: CASE EVENT DATE: 20250420
